FAERS Safety Report 6761131-4 (Version None)
Quarter: 2010Q2

REPORT INFORMATION
  Report Type: 
  Country: None (occurrence: None)
  Receive Date: 20100608
  Receipt Date: 20100528
  Transmission Date: 20101027
  Serious: Yes (Death, Hospitalization)
  Sender: FDA-Public Use
  Company Number: US-BAXTER-2010BH013669

PATIENT
  Age: 75 Year
  Sex: Female

DRUGS (2)
  1. DIANEAL [Suspect]
     Indication: PERITONEAL DIALYSIS
     Route: 033
     Dates: end: 20100517
  2. DIANEAL [Suspect]
     Indication: PERITONEAL DIALYSIS
     Route: 033
     Dates: start: 20090901, end: 20100517

REACTIONS (5)
  - CARDIAC FAILURE [None]
  - INTESTINAL FUNCTIONAL DISORDER [None]
  - INTESTINAL INFARCTION [None]
  - INTESTINAL ISCHAEMIA [None]
  - RENAL FAILURE [None]
